FAERS Safety Report 5545838-2 (Version None)
Quarter: 2007Q4

REPORT INFORMATION
  Report Type: 
  Country: None (occurrence: None)
  Receive Date: 20071123
  Receipt Date: 20061011
  Transmission Date: 20080405
  Serious: Yes (Hospitalization)
  Sender: FDA-Public Use
  Company Number: F03200600220

PATIENT
  Age: 74 Year
  Sex: Male
  Weight: 93.441 kg

DRUGS (11)
  1. OXALIPLATIN [Suspect]
     Indication: NEUROENDOCRINE TUMOUR
     Dosage: 170 MG (85 MG/M2) EVERY TWO WEEKS - INTRAVENOUS NOS
     Route: 042
     Dates: start: 20060927, end: 20060927
  2. LEUCOVORIN CALCIUM [Suspect]
     Indication: NEUROENDOCRINE TUMOUR
     Dosage: 400 MG (200 MG/M2) EVERY TWO WEEKS - INTRAVENOUS NOS
     Route: 042
     Dates: start: 20060927, end: 20060927
  3. FLUOROURACIL [Suspect]
     Indication: NEUROENDOCRINE TUMOUR
     Dosage: 4800 MG (1200 MG/M2/DAY) EVERY TWO WEEKS - INTRAVENOUS NOS
     Route: 042
     Dates: start: 20060927, end: 20060927
  4. BEVACIZUMAB - SOLUTION - UNIT DOSE : UNKNOWN [Suspect]
     Indication: NEUROENDOCRINE TUMOUR
     Dosage: MG (5 MG/KG) EVERY TWO WEEKS  - INTRAVENOUS NOS
     Route: 042
     Dates: start: 20060927, end: 20060927
  5. OCTREOTIDE ACETATE [Concomitant]
  6. FUROSEMIDE [Concomitant]
  7. ACYCLOVIR [Concomitant]
  8. SPIRONOLACTONE [Concomitant]
  9. DARBEPOETIN ALFA [Concomitant]
  10. LOPERAMIDE HYDROCHLORIDE [Concomitant]
  11. DIPHENOXYLATE HCL + ATROPINE SULFATE [Concomitant]

REACTIONS (2)
  - ANAEMIA [None]
  - FATIGUE [None]
